FAERS Safety Report 12903690 (Version 1)
Quarter: 2016Q4

REPORT INFORMATION
  Report Type: Spontaneous
  Country: JP (occurrence: JP)
  Receive Date: 20161102
  Receipt Date: 20161102
  Transmission Date: 20170207
  Serious: Yes (Death, Other)
  Sender: FDA-Public Use
  Company Number: JP-PFIZER INC-2016499485

PATIENT
  Age: 62 Year

DRUGS (1)
  1. TORISEL [Suspect]
     Active Substance: TEMSIROLIMUS
     Indication: METASTATIC RENAL CELL CARCINOMA
     Dosage: UNK
     Dates: start: 201507

REACTIONS (5)
  - Ascites [Unknown]
  - Neoplasm progression [Fatal]
  - Pneumonia [Unknown]
  - Lymphadenopathy mediastinal [Unknown]
  - Malignant ascites [Unknown]

NARRATIVE: CASE EVENT DATE: 201508
